FAERS Safety Report 8017022-4 (Version None)
Quarter: 2012Q1

REPORT INFORMATION
  Report Type: 
  Country: None (occurrence: None)
  Receive Date: 20120102
  Receipt Date: 20111228
  Transmission Date: 20120608
  Serious: Yes (Other)
  Sender: FDA-Public Use
  Company Number: PHHY2011US57781

PATIENT
  Sex: Male

DRUGS (1)
  1. GILENYA [Suspect]
     Indication: MULTIPLE SCLEROSIS
     Dosage: 0.5 MG, QD
     Route: 048
     Dates: start: 20110519, end: 20110901

REACTIONS (6)
  - LYMPHADENOPATHY [None]
  - INCREASED VISCOSITY OF BRONCHIAL SECRETION [None]
  - NASOPHARYNGITIS [None]
  - AXILLARY MASS [None]
  - DENTAL CARIES [None]
  - SINUSITIS [None]
